FAERS Safety Report 5620656-5 (Version None)
Quarter: 2008Q1

REPORT INFORMATION
  Report Type: 
  Country: None (occurrence: None)
  Receive Date: 20080208
  Receipt Date: 20080205
  Transmission Date: 20080703
  Serious: Yes (Congenital Anomaly)
  Sender: FDA-Public Use
  Company Number: US-GILEAD-2008-0015110

PATIENT
  Sex: Male
  Weight: 2.815 kg

DRUGS (7)
  1. TRUVADA [Suspect]
     Indication: DRUG EXPOSURE DURING PREGNANCY
     Route: 064
     Dates: end: 20070519
  2. VIREAD [Suspect]
     Indication: DRUG EXPOSURE DURING PREGNANCY
     Route: 065
     Dates: start: 20070519, end: 20071126
  3. REYATAZ [Concomitant]
     Indication: DRUG EXPOSURE DURING PREGNANCY
     Route: 064
     Dates: start: 20070519, end: 20071126
  4. REYATAZ [Concomitant]
  5. NORVIR [Concomitant]
     Indication: DRUG EXPOSURE DURING PREGNANCY
     Route: 064
     Dates: start: 20070519, end: 20071126
  6. ABACAVIR [Concomitant]
     Indication: DRUG EXPOSURE DURING PREGNANCY
     Route: 064
     Dates: start: 20070519, end: 20071126
  7. AZT [Concomitant]
     Indication: DRUG EXPOSURE DURING PREGNANCY
     Dosage: NI
     Route: 064
     Dates: start: 20071126, end: 20071126

REACTIONS (1)
  - LIMB MALFORMATION [None]
